FAERS Safety Report 4579555-2 (Version None)
Quarter: 2005Q1

REPORT INFORMATION
  Report Type: 
  Country: None (occurrence: None)
  Receive Date: 20050214
  Receipt Date: 20050202
  Transmission Date: 20050727
  Serious: Yes (Other)
  Sender: FDA-Public Use
  Company Number: US-JNJFOC-20050201655

PATIENT
  Sex: Male
  Weight: 83.01 kg

DRUGS (4)
  1. REMICADE [Suspect]
     Indication: CROHN'S DISEASE
     Route: 042
  2. IMURAN [Concomitant]
  3. TOPROL-XL [Concomitant]
  4. NORVASC [Concomitant]

REACTIONS (1)
  - BLOOD CREATININE INCREASED [None]
